FAERS Safety Report 17922244 (Version 1)
Quarter: 2020Q2

REPORT INFORMATION
  Report Type: Spontaneous
  Country: US (occurrence: US)
  Receive Date: 20200620
  Receipt Date: 20200620
  Transmission Date: 20200714
  Serious: Yes (Other)
  Sender: FDA-Public Use
  Company Number: None

PATIENT
  Age: 67 Year
  Sex: Female
  Weight: 72 kg

DRUGS (6)
  1. SYNTHROID [Concomitant]
     Active Substance: LEVOTHYROXINE SODIUM
  2. ELAVIL [Concomitant]
     Active Substance: AMITRIPTYLINE HYDROCHLORIDE
  3. NP THYROID [Suspect]
     Active Substance: LEVOTHYROXINE\LIOTHYRONINE
     Indication: HYPOTHYROIDISM
     Route: 048
     Dates: start: 20150101, end: 20200604
  4. VITAMIN D [Concomitant]
     Active Substance: VITAMIN D NOS
  5. ARMOUR THYROID [Concomitant]
     Active Substance: THYROID, PORCINE
  6. KLONOPIN [Concomitant]
     Active Substance: CLONAZEPAM

REACTIONS (16)
  - Syncope [None]
  - Dyspnoea [None]
  - Asthenia [None]
  - Decreased appetite [None]
  - Palpitations [None]
  - Chest discomfort [None]
  - Anxiety [None]
  - Product substitution issue [None]
  - Dizziness [None]
  - Head injury [None]
  - Fall [None]
  - Loss of consciousness [None]
  - Headache [None]
  - Concussion [None]
  - Anger [None]
  - Confusional state [None]

NARRATIVE: CASE EVENT DATE: 20200604
